FAERS Safety Report 9782847 (Version 1)
Quarter: 2013Q4

REPORT INFORMATION
  Report Type: Spontaneous
  Country: US (occurrence: None)
  Receive Date: 20131224
  Receipt Date: 20131224
  Transmission Date: 20140711
  Serious: Yes (Hospitalization)
  Sender: FDA-Public Use
  Company Number: None

PATIENT
  Age: 62 Year
  Sex: Male
  Weight: 63.1 kg

DRUGS (2)
  1. MINERALS/MULTIVITAMINS [Suspect]
     Indication: VITAMIN SUPPLEMENTATION
     Route: 048
     Dates: start: 20130326, end: 20130927
  2. MINERALS/MULTIVITAMINS [Suspect]
     Indication: MINERAL SUPPLEMENTATION
     Route: 048
     Dates: start: 20130326, end: 20130927

REACTIONS (1)
  - Laryngospasm [None]
